FAERS Safety Report 20536291 (Version 1)
Quarter: 2022Q1

REPORT INFORMATION
  Report Type: Spontaneous
  Country: AT (occurrence: AT)
  Receive Date: 20220302
  Receipt Date: 20220302
  Transmission Date: 20220423
  Serious: Yes (Other)
  Sender: FDA-Public Use
  Company Number: AT-ORGANON-O2202AUT001825

PATIENT
  Age: 42 Year
  Sex: Female

DRUGS (3)
  1. PREGNYL [Suspect]
     Active Substance: CHORIOGONADOTROPIN ALFA
     Dosage: UNK
     Dates: start: 20210212, end: 20210212
  2. PREGNYL [Suspect]
     Active Substance: CHORIOGONADOTROPIN ALFA
     Dosage: UNK
     Dates: start: 20211030, end: 20211030
  3. COVID-19 VACCINE NOS [Suspect]
     Active Substance: COVID-19 VACCINE NOS
     Dosage: UNK
     Dates: start: 20211112

REACTIONS (4)
  - Abortion missed [Unknown]
  - Decreased embryo viability [Unknown]
  - Failed in vitro fertilisation [Unknown]
  - Emotional distress [Unknown]

NARRATIVE: CASE EVENT DATE: 20210322
